FAERS Safety Report 8000683-3 (Version None)
Quarter: 2011Q4

REPORT INFORMATION
  Report Type: 
  Country: None (occurrence: None)
  Receive Date: 20111222
  Receipt Date: 20111213
  Transmission Date: 20120403
  Serious: Yes (Hospitalization, Other)
  Sender: FDA-Public Use
  Company Number: PE-ASTELLAS-2011US006926

PATIENT
  Sex: Male
  Weight: 61 kg

DRUGS (2)
  1. ERLOTINIB HYDROCHLORIDE [Suspect]
     Indication: HEPATIC NEOPLASM MALIGNANT
     Dosage: UNK
     Route: 048
     Dates: start: 20110926
  2. SORAFENIB [Suspect]
     Indication: HEPATIC NEOPLASM MALIGNANT
     Dosage: 800 MG, UID/QD
     Route: 048
     Dates: start: 20110926

REACTIONS (8)
  - LACERATION [None]
  - CONTUSION [None]
  - URINARY TRACT INFECTION [None]
  - OFF LABEL USE [None]
  - ANAEMIA [None]
  - HYPONATRAEMIA [None]
  - FALL [None]
  - HYPOKALAEMIA [None]
